FAERS Safety Report 6805317-9 (Version None)
Quarter: 2010Q2

REPORT INFORMATION
  Report Type: 
  Country: None (occurrence: None)
  Receive Date: 20100628
  Receipt Date: 20071022
  Transmission Date: 20101027
  Serious: Yes (Other)
  Sender: FDA-Public Use
  Company Number: US-PFIZER INC-2007089901

PATIENT
  Age: 52 Year
  Sex: Female

DRUGS (6)
  1. GEODON [Suspect]
     Indication: BIPOLAR I DISORDER
     Dates: start: 20040504
  2. EFFEXOR XR [Concomitant]
     Route: 048
     Dates: start: 20040101, end: 20070101
  3. CARBAMAZEPINE [Concomitant]
     Route: 048
     Dates: start: 20040101, end: 20050101
  4. RITALIN [Concomitant]
     Route: 048
     Dates: start: 20030101, end: 20070101
  5. LAMICTAL [Concomitant]
     Route: 048
     Dates: start: 20050101
  6. ADDERALL 10 [Concomitant]
     Route: 048
     Dates: start: 20050101, end: 20050101

REACTIONS (1)
  - TONGUE OEDEMA [None]
